FAERS Safety Report 5155796-0 (Version None)
Quarter: 2006Q4

REPORT INFORMATION
  Report Type: 
  Country: None (occurrence: None)
  Receive Date: 20061114
  Receipt Date: 20061031
  Transmission Date: 20070319
  Serious: Yes (Other)
  Sender: FDA-Public Use
  Company Number: 2006136301

PATIENT
  Sex: Female

DRUGS (2)
  1. CHANTIX [Suspect]
     Indication: SMOKING CESSATION THERAPY
     Dates: start: 20060101
  2. INSULIN (INSULIN) [Concomitant]

REACTIONS (3)
  - CARDIAC DISORDER [None]
  - VASCULAR OCCLUSION [None]
  - WEIGHT DECREASED [None]
